FAERS Safety Report 8592911-0 (Version None)
Quarter: 2012Q3

REPORT INFORMATION
  Report Type: 
  Country: None (occurrence: None)
  Receive Date: 20120814
  Receipt Date: 20120730
  Transmission Date: 20120928
  Serious: Yes (Other)
  Sender: FDA-Public Use
  Company Number: DE-ROCHE-1098405

PATIENT
  Sex: Female

DRUGS (7)
  1. METHOTREXATE [Concomitant]
     Indication: BREAST CANCER
  2. CYCLOPHOSPHAMIDE [Concomitant]
     Indication: BREAST CANCER
  3. TAMOXIFEN CITRATE [Concomitant]
     Indication: BREAST CANCER
  4. HERCEPTIN [Suspect]
  5. HERCEPTIN [Suspect]
     Indication: BREAST CANCER
  6. EPIRUBICIN [Concomitant]
     Indication: BREAST CANCER
  7. FLUOROURACIL [Concomitant]
     Indication: BREAST CANCER

REACTIONS (3)
  - DILATATION VENTRICULAR [None]
  - LEFT ATRIAL DILATATION [None]
  - MITRAL VALVE INCOMPETENCE [None]
